FAERS Safety Report 8883162 (Version 1)
Quarter: 2012Q4

REPORT INFORMATION
  Report Type: 
  Country: ES (occurrence: ES)
  Receive Date: 20121102
  Receipt Date: 20121102
  Transmission Date: 20130627
  Serious: Yes (Hospitalization, Other)
  Sender: FDA-Public Use
  Company Number: PHHY2012ES090248

PATIENT
  Age: 34 Year
  Sex: Female

DRUGS (1)
  1. GILENYA [Suspect]
     Route: 048
     Dates: start: 20121010

REACTIONS (7)
  - Atrioventricular block second degree [Unknown]
  - Atrioventricular block first degree [Unknown]
  - Bradycardia [Recovered/Resolved]
  - Dizziness [Unknown]
  - Chest pain [Unknown]
  - Blood pressure decreased [Unknown]
  - Heart rate increased [Unknown]
